FAERS Safety Report 17201308 (Version 1)
Quarter: 2019Q4

REPORT INFORMATION
  Report Type: Spontaneous
  Country: CN (occurrence: CN)
  Receive Date: 20191226
  Receipt Date: 20191226
  Transmission Date: 20200122
  Serious: Yes (Other)
  Sender: FDA-Public Use
  Company Number: CN-SA-2019SA353303

PATIENT
  Age: 68 Year
  Sex: Male

DRUGS (4)
  1. NEDAPLATIN [Concomitant]
     Active Substance: NEDAPLATIN
     Indication: CHEMOTHERAPY
     Dosage: 140 MG
     Route: 042
     Dates: start: 20170616
  2. DOCETAXEL. [Suspect]
     Active Substance: DOCETAXEL
     Dosage: 120 MG
     Route: 042
     Dates: start: 20170718
  3. NEDAPLATIN [Concomitant]
     Active Substance: NEDAPLATIN
     Dosage: 140 UNK
     Route: 042
     Dates: start: 20170718
  4. DOCETAXEL. [Suspect]
     Active Substance: DOCETAXEL
     Indication: CHEMOTHERAPY
     Dosage: 120 MG
     Route: 042
     Dates: start: 20170616

REACTIONS (1)
  - Carcinoembryonic antigen increased [Recovering/Resolving]
